FAERS Safety Report 4781721-8 (Version None)
Quarter: 2005Q3

REPORT INFORMATION
  Report Type: 
  Country: None (occurrence: None)
  Receive Date: 20050927
  Receipt Date: 20050912
  Transmission Date: 20060218
  Serious: Yes (Other)
  Sender: FDA-Public Use
  Company Number: 2005126619

PATIENT
  Age: 38 Year
  Sex: Male
  Weight: 122.4712 kg

DRUGS (1)
  1. SUDAFED COLD AND COUGH (PARACETAMOL, PSEUDOEPHEDRINE, DEXTROAMETHORPHA [Suspect]
     Dosage: ORAL
     Route: 048
     Dates: start: 20050721

REACTIONS (2)
  - ANAPHYLACTIC REACTION [None]
  - DRUG HYPERSENSITIVITY [None]
